FAERS Safety Report 13911568 (Version 1)
Quarter: 2017Q3

REPORT INFORMATION
  Report Type: Spontaneous
  Country: US (occurrence: US)
  Receive Date: 20170828
  Receipt Date: 20170828
  Transmission Date: 20171127
  Serious: No
  Sender: FDA-Public Use
  Company Number: US-ROCHE-1142174

PATIENT
  Sex: Male

DRUGS (7)
  1. NUTROPIN AQ [Suspect]
     Active Substance: SOMATROPIN
     Indication: NOONAN SYNDROME
  2. BECLOMETHASONE [Concomitant]
     Active Substance: BECLOMETHASONE
     Dosage: TWO PUFFS
     Route: 065
  3. PROVENTIL [Concomitant]
     Active Substance: ALBUTEROL
     Dosage: TWO PUFFS
     Route: 065
  4. NUTROPIN AQ [Suspect]
     Active Substance: SOMATROPIN
     Indication: DWARFISM
     Route: 058
  5. INTAL [Concomitant]
     Active Substance: CROMOLYN SODIUM
     Dosage: TWO PUFFS
     Route: 065
  6. PROTROPIN [Concomitant]
     Active Substance: SOMATREM
     Route: 058
  7. TESTOSTERONE. [Concomitant]
     Active Substance: TESTOSTERONE
     Route: 030

REACTIONS (2)
  - Scar [Unknown]
  - Scoliosis [Unknown]
